FAERS Safety Report 10244458 (Version 1)
Quarter: 2014Q1

REPORT INFORMATION
  Report Type: Spontaneous
  Country: US (occurrence: None)
  Receive Date: 20140306
  Receipt Date: 20140306
  Transmission Date: 20141002
  Serious: Yes (Disabling, Other)
  Sender: FDA-Public Use
  Company Number: 163-21880-13083084

PATIENT
  Age: 56 Year
  Sex: Female
  Weight: 82.56 kg

DRUGS (11)
  1. REVLIMID (LENALIDOMIDE) (5 MILLIGRAM, CAPSULES) [Suspect]
     Indication: MYELODYSPLASTIC SYNDROME
     Route: 048
     Dates: start: 20130722, end: 20130807
  2. AZACITIDINE (UNKNOWN) [Concomitant]
  3. ASA (ACETYLSALICYLIC ACID) (UNKNOWN) [Concomitant]
  4. LORAZEPAM (UNKNOWN) [Concomitant]
  5. NEUPOGEN (FILGRASTIM) (UNKNOWN) [Concomitant]
  6. PREDNISONE (UNKNOWN) [Concomitant]
  7. ZOFRAN (ONDANSETRON HYDROCHLORIDE) (UNKNOWN) [Concomitant]
  8. PSEUDOEPHEDRINE (UNKNOWN) [Concomitant]
  9. CIPRO (UNKNOWN) [Concomitant]
  10. PRBC (UNKNOWN) [Concomitant]
  11. VELCADE (BORTEZOMIB) (UNKNOWN) [Concomitant]

REACTIONS (4)
  - Neutrophil count decreased [None]
  - Haemoglobin decreased [None]
  - Haematocrit decreased [None]
  - White blood cell count decreased [None]
